FAERS Safety Report 10220286 (Version 2)
Quarter: 2014Q3

REPORT INFORMATION
  Report Type: Report from Study
  Country: US (occurrence: US)
  Receive Date: 20140606
  Receipt Date: 20140702
  Transmission Date: 20150326
  Serious: Yes (Death, Hospitalization)
  Sender: FDA-Public Use
  Company Number: US-ROCHE-1412092

PATIENT
  Age: 55 Year
  Sex: Male
  Weight: 103.42 kg

DRUGS (10)
  1. KEPPRA [Concomitant]
     Active Substance: LEVETIRACETAM
  2. BLINDED DASATINIB [Suspect]
     Active Substance: DASATINIB
     Indication: GLIOBLASTOMA
     Dosage: LAST DOSE ADMINISTERED BEFORE SAE WAS ON 23/MAY/2014.
     Route: 048
     Dates: start: 20130409
  3. CARAFATE [Concomitant]
     Active Substance: SUCRALFATE
  4. NORCO [Concomitant]
     Active Substance: ACETAMINOPHEN\HYDROCODONE BITARTRATE
  5. PERCOCET [Concomitant]
     Active Substance: ACETAMINOPHEN\OXYCODONE HYDROCHLORIDE
  6. BEVACIZUMAB [Suspect]
     Active Substance: BEVACIZUMAB
     Indication: GLIOBLASTOMA MULTIFORME
     Dosage: GIVEN OVER 30-90 MINUTES ON DAY 1, LAST DOSE ADMINISTERED BEFORE SAE WAS ON 20/MAY/2014 WHICH WAS HI
     Route: 042
     Dates: start: 20130409
  7. XARELTO [Suspect]
     Active Substance: RIVAROXABAN
     Indication: PRODUCT USED FOR UNKNOWN INDICATION
     Route: 065
  8. DECADRON [Concomitant]
     Active Substance: DEXAMETHASONE
  9. METFORMIN [Concomitant]
     Active Substance: METFORMIN HYDROCHLORIDE
  10. POTASSIUM CHLORIDE. [Concomitant]
     Active Substance: POTASSIUM CHLORIDE

REACTIONS (2)
  - Cardiac arrest [Fatal]
  - Epistaxis [Unknown]

NARRATIVE: CASE EVENT DATE: 20140523
